FAERS Safety Report 7461765-8 (Version None)
Quarter: 2011Q2

REPORT INFORMATION
  Report Type: 
  Country: None (occurrence: None)
  Receive Date: 20110506
  Receipt Date: 20080827
  Transmission Date: 20111010
  Serious: Yes (Death, Hospitalization, Other)
  Sender: FDA-Public Use
  Company Number: US-BAYER-200839751NA

PATIENT
  Age: 57 Year
  Sex: Male
  Weight: 58.5 kg

DRUGS (16)
  1. TRASYLOL [Suspect]
     Indication: MITRAL VALVE REPAIR
  2. MORPHINE SULFATE [Concomitant]
     Dosage: UNK
     Route: 048
     Dates: start: 20070206
  3. COUMADIN [Concomitant]
     Dosage: 5 MG, QD
     Route: 048
  4. LOPRESSOR [Concomitant]
     Dosage: 25 MG, BID
     Route: 048
  5. LISINOPRIL [Concomitant]
     Dosage: UNK
  6. FENTANYL [Concomitant]
     Dosage: UNK
     Dates: start: 20070206
  7. VANCOMYCIN [Concomitant]
     Dosage: UNK
     Dates: start: 20070206
  8. MILRINONE [Concomitant]
     Dosage: UNK
     Dates: start: 20070206
  9. DIGOXIN [Concomitant]
     Dosage: 0.25 MG, QD
     Route: 048
  10. HYDROCHLOROTHIAZIDE [Concomitant]
     Route: 048
  11. PLAVIX [Concomitant]
     Dosage: 75 MG, QD
     Route: 048
  12. LIPITOR [Concomitant]
     Dosage: 80 MG, QD
     Route: 048
  13. TRASYLOL [Suspect]
     Indication: STERNOTOMY
  14. ACETYLSALICYLIC ACID SRT [Concomitant]
     Route: 048
  15. HEPARIN [Concomitant]
     Dosage: UNK
     Dates: start: 20070206
  16. TRASYLOL [Suspect]
     Indication: HEART VALVE REPLACEMENT
     Dosage: TEST DOSE 1ML, LOADING DOSE 199ML FOLLOWED BY 50CC/HR
     Route: 042
     Dates: start: 20070206, end: 20070206

REACTIONS (6)
  - DEATH [None]
  - RENAL FAILURE [None]
  - UNEVALUABLE EVENT [None]
  - PAIN [None]
  - INJURY [None]
  - ANHEDONIA [None]
